FAERS Safety Report 25600224 (Version 4)
Quarter: 2025Q3

REPORT INFORMATION
  Report Type: Spontaneous
  Country: CN (occurrence: CN)
  Receive Date: 20250724
  Receipt Date: 20250812
  Transmission Date: 20251021
  Serious: Yes (Hospitalization, Other)
  Sender: SANOFI AVENTIS
  Company Number: HK-DialogSolutions-SAAVPROD-PI798962-C1

PATIENT
  Age: 11 Year
  Sex: Male

DRUGS (29)
  1. ALEMTUZUMAB [Suspect]
     Active Substance: ALEMTUZUMAB
     Indication: Epstein-Barr virus associated lymphoproliferative disorder
     Dosage: 0.2 MG/KG, FOR 5 DOSES ON DAY -14 TO DAY -10
     Route: 058
  2. ALEMTUZUMAB [Suspect]
     Active Substance: ALEMTUZUMAB
     Indication: Haemophagocytic lymphohistiocytosis
  3. DEXAMETHASONE [Suspect]
     Active Substance: DEXAMETHASONE
     Indication: Epstein-Barr virus associated lymphoproliferative disorder
  4. DEXAMETHASONE [Suspect]
     Active Substance: DEXAMETHASONE
     Indication: Haemophagocytic lymphohistiocytosis
  5. HYDROCORTISONE [Suspect]
     Active Substance: HYDROCORTISONE
     Indication: Epstein-Barr virus associated lymphoproliferative disorder
  6. HYDROCORTISONE [Suspect]
     Active Substance: HYDROCORTISONE
     Indication: Haemophagocytic lymphohistiocytosis
  7. FLUDARABINE PHOSPHATE [Suspect]
     Active Substance: FLUDARABINE PHOSPHATE
     Indication: Epstein-Barr virus associated lymphoproliferative disorder
     Dosage: 30 MG/M2, QD
  8. FLUDARABINE PHOSPHATE [Suspect]
     Active Substance: FLUDARABINE PHOSPHATE
     Indication: Haemophagocytic lymphohistiocytosis
  9. THIOTEPA [Suspect]
     Active Substance: THIOTEPA
     Indication: Epstein-Barr virus associated lymphoproliferative disorder
  10. THIOTEPA [Suspect]
     Active Substance: THIOTEPA
     Indication: Haemophagocytic lymphohistiocytosis
  11. MELPHALAN [Suspect]
     Active Substance: MELPHALAN
     Indication: Epstein-Barr virus associated lymphoproliferative disorder
  12. MELPHALAN [Suspect]
     Active Substance: MELPHALAN
     Indication: Haemophagocytic lymphohistiocytosis
  13. CYCLOPHOSPHAMIDE [Suspect]
     Active Substance: CYCLOPHOSPHAMIDE
     Indication: Epstein-Barr virus associated lymphoproliferative disorder
  14. CYCLOPHOSPHAMIDE [Suspect]
     Active Substance: CYCLOPHOSPHAMIDE
     Indication: Haemophagocytic lymphohistiocytosis
  15. ETOPOSIDE [Suspect]
     Active Substance: ETOPOSIDE
     Indication: Epstein-Barr virus associated lymphoproliferative disorder
     Dosage: 5 MG/KG, QD ON DAY -6 AND DAY -5
  16. ETOPOSIDE [Suspect]
     Active Substance: ETOPOSIDE
     Indication: Haemophagocytic lymphohistiocytosis
  17. CYCLOSPORINE [Suspect]
     Active Substance: CYCLOSPORINE
     Indication: Epstein-Barr virus associated lymphoproliferative disorder
  18. CYCLOSPORINE [Suspect]
     Active Substance: CYCLOSPORINE
     Indication: Haemophagocytic lymphohistiocytosis
  19. BUDESONIDE [Suspect]
     Active Substance: BUDESONIDE
     Indication: Epstein-Barr virus associated lymphoproliferative disorder
     Route: 048
  20. BUDESONIDE [Suspect]
     Active Substance: BUDESONIDE
     Indication: Haemophagocytic lymphohistiocytosis
  21. RUXOLITINIB [Suspect]
     Active Substance: RUXOLITINIB
     Indication: Epstein-Barr virus associated lymphoproliferative disorder
  22. RUXOLITINIB [Suspect]
     Active Substance: RUXOLITINIB
     Indication: Haemophagocytic lymphohistiocytosis
  23. TACROLIMUS [Suspect]
     Active Substance: TACROLIMUS
     Indication: Epstein-Barr virus associated lymphoproliferative disorder
  24. TACROLIMUS [Suspect]
     Active Substance: TACROLIMUS
     Indication: Haemophagocytic lymphohistiocytosis
  25. HEMATOPOIETIC PERIPHERAL BLOOD STEM CELLS [Concomitant]
     Indication: Epstein-Barr virus associated lymphoproliferative disorder
  26. HEMATOPOIETIC PERIPHERAL BLOOD STEM CELLS [Concomitant]
     Indication: Haemophagocytic lymphohistiocytosis
  27. T CELLS [Concomitant]
     Indication: Epstein-Barr virus associated lymphoproliferative disorder
  28. T CELLS [Concomitant]
     Indication: Haemophagocytic lymphohistiocytosis
  29. COTRIMOXAZOLE [Concomitant]
     Active Substance: SULFAMETHOXAZOLE\TRIMETHOPRIM

REACTIONS (7)
  - Engraftment syndrome [Unknown]
  - Off label use [Unknown]
  - Venoocclusive liver disease [Unknown]
  - Acute graft versus host disease in skin [Unknown]
  - Acute graft versus host disease in liver [Unknown]
  - Graft versus host disease in gastrointestinal tract [Unknown]
  - Systemic infection [Unknown]
